FAERS Safety Report 5388589-X (Version None)
Quarter: 2007Q3

REPORT INFORMATION
  Report Type: 
  Country: None (occurrence: None)
  Receive Date: 20070716
  Receipt Date: 20070704
  Transmission Date: 20080115
  Serious: Yes (Other)
  Sender: FDA-Public Use
  Company Number: US-PFIZER INC-2007056238

PATIENT
  Sex: Female
  Weight: 86.2 kg

DRUGS (6)
  1. CHANTIX [Suspect]
     Indication: SMOKING CESSATION THERAPY
     Dates: start: 20070606, end: 20070627
  2. AVANDAMET [Concomitant]
  3. DYAZIDE [Concomitant]
  4. ATENOLOL [Concomitant]
  5. ENALAPRIL MALEATE [Concomitant]
  6. VYTORIN [Concomitant]

REACTIONS (2)
  - BLOOD GLUCOSE INCREASED [None]
  - NOCTURIA [None]
